FAERS Safety Report 19254619 (Version 5)
Quarter: 2021Q4

REPORT INFORMATION
  Report Type: Report from Study
  Country: IE (occurrence: IE)
  Receive Date: 20210513
  Receipt Date: 20211221
  Transmission Date: 20220304
  Serious: Yes (Other)
  Sender: FDA-Public Use
  Company Number: IE-TAKEDA-2021TUS014891

PATIENT

DRUGS (12)
  1. PARATHYROID HORMONE [Suspect]
     Active Substance: PARATHYROID HORMONE
     Indication: Product used for unknown indication
     Dosage: 122.1 MICROGRAM, QD
     Route: 065
     Dates: start: 20200703
  2. PARATHYROID HORMONE [Suspect]
     Active Substance: PARATHYROID HORMONE
     Indication: Product used for unknown indication
     Dosage: 122.1 MICROGRAM, QD
     Route: 065
     Dates: start: 20200703
  3. PARATHYROID HORMONE [Suspect]
     Active Substance: PARATHYROID HORMONE
     Indication: Product used for unknown indication
     Dosage: 122.1 MICROGRAM, QD
     Route: 065
     Dates: start: 20200703
  4. PARATHYROID HORMONE [Suspect]
     Active Substance: PARATHYROID HORMONE
     Dosage: 133.3 MICROGRAM,QD
     Route: 065
     Dates: start: 20200301
  5. PARATHYROID HORMONE [Suspect]
     Active Substance: PARATHYROID HORMONE
     Dosage: 133.3 MICROGRAM,QD
     Route: 065
     Dates: start: 20200301
  6. PARATHYROID HORMONE [Suspect]
     Active Substance: PARATHYROID HORMONE
     Dosage: 133.3 MICROGRAM,QD
     Route: 065
     Dates: start: 20200301
  7. PARATHYROID HORMONE [Suspect]
     Active Substance: PARATHYROID HORMONE
     Dosage: 111.0 MICROGRAM,QD
     Route: 065
     Dates: start: 20210412
  8. PARATHYROID HORMONE [Suspect]
     Active Substance: PARATHYROID HORMONE
     Dosage: 111.0 MICROGRAM,QD
     Route: 065
     Dates: start: 20210412
  9. PARATHYROID HORMONE [Suspect]
     Active Substance: PARATHYROID HORMONE
     Dosage: 111.0 MICROGRAM,QD
     Route: 065
     Dates: start: 20210412
  10. PARATHYROID HORMONE [Suspect]
     Active Substance: PARATHYROID HORMONE
     Dosage: 133.3 MICROGRAM,QD
     Route: 065
     Dates: start: 20210412
  11. PARATHYROID HORMONE [Suspect]
     Active Substance: PARATHYROID HORMONE
     Dosage: 133.3 MICROGRAM,QD
     Route: 065
     Dates: start: 20210412
  12. PARATHYROID HORMONE [Suspect]
     Active Substance: PARATHYROID HORMONE
     Dosage: 133.3 MICROGRAM,QD
     Route: 065
     Dates: start: 20210412

REACTIONS (7)
  - Helicobacter infection [Recovered/Resolved]
  - Renal neoplasm [Not Recovered/Not Resolved]
  - Weight decreased [Unknown]
  - Muscle contractions involuntary [Unknown]
  - Hepatic steatosis [Not Recovered/Not Resolved]
  - Hypercalcaemia [Recovered/Resolved]
  - Hypocalcaemia [Recovered/Resolved]

NARRATIVE: CASE EVENT DATE: 20200709
